FAERS Safety Report 25890476 (Version 3)
Quarter: 2025Q4

REPORT INFORMATION
  Report Type: Spontaneous
  Country: US (occurrence: US)
  Receive Date: 20251007
  Receipt Date: 20251113
  Transmission Date: 20260117
  Serious: Yes (Other)
  Sender: PFIZER
  Company Number: US-PFIZER INC-202500197194

PATIENT
  Age: 61 Year
  Sex: Male

DRUGS (1)
  1. VELSIPITY [Suspect]
     Active Substance: ETRASIMOD ARGININE
     Indication: Colitis ulcerative
     Dosage: UNK
     Route: 048

REACTIONS (9)
  - Rectal haemorrhage [Unknown]
  - Condition aggravated [Unknown]
  - Condition aggravated [Unknown]
  - Faecal calprotectin increased [Unknown]
  - Drug ineffective [Unknown]
  - C-reactive protein increased [Unknown]
  - Middle insomnia [Unknown]
  - Diarrhoea [Unknown]
  - Body temperature increased [Unknown]

NARRATIVE: CASE EVENT DATE: 20250723
